FAERS Safety Report 9523465 (Version 2)
Quarter: 2013Q3

REPORT INFORMATION
  Report Type: Spontaneous
  Country: US (occurrence: US)
  Receive Date: 20130913
  Receipt Date: 20130926
  Transmission Date: 20140515
  Serious: Yes (Hospitalization, Other)
  Sender: FDA-Public Use
  Company Number: PHHY2013US100879

PATIENT
  Sex: Male

DRUGS (5)
  1. BACLOFEN INTRATHECAL [Suspect]
     Indication: SPINAL PAIN
     Dosage: UNK UKN, UNK
     Route: 037
  2. FENTANYL [Suspect]
     Dosage: 351.5 UG, DAILY
     Route: 037
  3. CLONIDINE [Suspect]
     Dosage: 175.74 UG, DAILY
     Route: 037
  4. BUPIVACAINE [Suspect]
     Dosage: 175.74 UG, DAILY
     Route: 037
  5. MORPHINE [Suspect]
     Dosage: 22.495 UG, DAILY
     Route: 037

REACTIONS (13)
  - Dysuria [Unknown]
  - Feeling hot [Unknown]
  - Feeling jittery [Unknown]
  - Vision blurred [Unknown]
  - Malaise [Unknown]
  - Headache [Unknown]
  - Somnolence [Unknown]
  - Hyperhidrosis [Unknown]
  - Vomiting [Unknown]
  - Asthenia [Unknown]
  - Infusion site fibrosis [Unknown]
  - Drug withdrawal syndrome [Unknown]
  - No therapeutic response [Unknown]
